FAERS Safety Report 7436198-0 (Version None)
Quarter: 2011Q2

REPORT INFORMATION
  Report Type: 
  Country: None (occurrence: None)
  Receive Date: 20110425
  Receipt Date: 20110418
  Transmission Date: 20111010
  Serious: Yes (Hospitalization)
  Sender: FDA-Public Use
  Company Number: US-RB-026036-11

PATIENT
  Age: 25 Year
  Sex: Male

DRUGS (1)
  1. SUBOXONE [Suspect]
     Indication: PRODUCT USED FOR UNKNOWN INDICATION
     Dosage: DOSING INFORMATION UNKNOWN
     Route: 065
     Dates: start: 20090101

REACTIONS (4)
  - UNDERDOSE [None]
  - ANGER [None]
  - DRUG DEPENDENCE [None]
  - CYST [None]
